FAERS Safety Report 4495228-9 (Version None)
Quarter: 2004Q4

REPORT INFORMATION
  Report Type: 
  Country: None (occurrence: None)
  Receive Date: 20041108
  Receipt Date: 20040719
  Transmission Date: 20050328
  Serious: No
  Sender: FDA-Public Use
  Company Number: US-GLAXOSMITHKLINE-A0518810A

PATIENT
  Age: 80 Year
  Sex: Female

DRUGS (2)
  1. AVANDAMET [Suspect]
     Dosage: 1TAB PER DAY
     Route: 048
     Dates: start: 20040601
  2. GLYBURIDE [Concomitant]

REACTIONS (5)
  - ASTHENIA [None]
  - DRY MOUTH [None]
  - INSOMNIA [None]
  - POLLAKIURIA [None]
  - TREMOR [None]
